FAERS Safety Report 6458436-3 (Version None)
Quarter: 2009Q4

REPORT INFORMATION
  Report Type: 
  Country: None (occurrence: None)
  Receive Date: 20091125
  Receipt Date: 20091117
  Transmission Date: 20100525
  Serious: Yes (Life-Threatening, Hospitalization)
  Sender: FDA-Public Use
  Company Number: DE-RANBAXY-2009RR-22596

PATIENT
  Age: 79 Year
  Sex: Female
  Weight: 71 kg

DRUGS (3)
  1. IBUPROFEN [Suspect]
     Indication: SCIATICA
     Dosage: 600 MG, BID
     Route: 048
     Dates: start: 20080401, end: 20081024
  2. GINGIUM [Suspect]
     Indication: DEMENTIA
     Dosage: 40 MG, BID
     Route: 048
     Dates: start: 20050101, end: 20081024
  3. FOLSAEURE ^HEVERT^ [Concomitant]
     Indication: FOLATE DEFICIENCY
     Dosage: 5 MG, QD
     Route: 048
     Dates: start: 20050101, end: 20081024

REACTIONS (1)
  - DUODENAL ULCER HAEMORRHAGE [None]
